FAERS Safety Report 18643314 (Version 2)
Quarter: 2020Q4

REPORT INFORMATION
  Report Type: Spontaneous
  Country: FR (occurrence: FR)
  Receive Date: 20201221
  Receipt Date: 20201229
  Transmission Date: 20210114
  Serious: Yes (Hospitalization, Other)
  Sender: FDA-Public Use
  Company Number: FR-AMGEN-FRASP2020207251

PATIENT
  Age: 63 Year
  Sex: Female
  Weight: 118 kg

DRUGS (1)
  1. NPLATE [Suspect]
     Active Substance: ROMIPLOSTIM
     Indication: IMMUNE THROMBOCYTOPENIA
     Dosage: 1200 MICROCURIE
     Route: 058
     Dates: start: 201801

REACTIONS (2)
  - Myelofibrosis [Not Recovered/Not Resolved]
  - Bone marrow reticulin fibrosis [Not Recovered/Not Resolved]

NARRATIVE: CASE EVENT DATE: 2019
